FAERS Safety Report 7949600-2 (Version None)
Quarter: 2011Q4

REPORT INFORMATION
  Report Type: 
  Country: None (occurrence: None)
  Receive Date: 20111130
  Receipt Date: 20111123
  Transmission Date: 20120403
  Serious: Yes (Hospitalization)
  Sender: FDA-Public Use
  Company Number: SE-ELI_LILLY_AND_COMPANY-SE201111007661

PATIENT
  Sex: Female

DRUGS (1)
  1. EFFIENT [Suspect]

REACTIONS (2)
  - MYOCARDIAL INFARCTION [None]
  - HYPERSENSITIVITY [None]
